FAERS Safety Report 10136171 (Version 1)
Quarter: 2014Q2

REPORT INFORMATION
  Report Type: Report from Study
  Country: IN (occurrence: IN)
  Receive Date: 20140429
  Receipt Date: 20140429
  Transmission Date: 20141212
  Serious: Yes (Death)
  Sender: FDA-Public Use
  Company Number: IN-ROCHE-1391500

PATIENT
  Age: 43 Year
  Sex: Male

DRUGS (6)
  1. ACTEMRA [Suspect]
     Indication: RHEUMATOID ARTHRITIS
     Route: 042
     Dates: start: 20130204, end: 20140324
  2. CARDACE (INDIA) [Concomitant]
     Dosage: ONCE AFTER DINNER
     Route: 065
     Dates: start: 20130928, end: 20140419
  3. ECOSPRIN [Concomitant]
     Dosage: ONCE BEFORE BREAKFAST
     Route: 065
     Dates: start: 20130928, end: 20140419
  4. STORVAS [Concomitant]
     Dosage: ONCE AFTER DINNER
     Route: 065
     Dates: start: 20130928, end: 20140419
  5. NEBIVOLOL [Concomitant]
     Dosage: ONCE AFTER BREAKFAST
     Route: 065
     Dates: start: 20130928, end: 20140419
  6. CALPOL [Concomitant]
     Indication: PAIN
     Dosage: ONCE AFTER BREAKFAST AND ONCE AFTER DINNER
     Route: 065
     Dates: start: 20130928, end: 20140419

REACTIONS (1)
  - Myocardial infarction [Fatal]
